FAERS Safety Report 8814642 (Version 2)
Quarter: 2012Q4

REPORT INFORMATION
  Report Type: 
  Country: ES (occurrence: ES)
  Receive Date: 20120928
  Receipt Date: 20121105
  Transmission Date: 20130627
  Serious: Yes (Life-Threatening, Hospitalization)
  Sender: FDA-Public Use
  Company Number: ES-BAYER-2012-100807

PATIENT
  Age: 76 Year
  Sex: Female

DRUGS (6)
  1. ADIRO 100 [Suspect]
     Dosage: 100 mg, QD
     Route: 048
     Dates: start: 20120203, end: 20120221
  2. HEPARINA [Interacting]
     Indication: ATRIAL FIBRILLATION
     Dosage: 27.5 IU(1000)
     Route: 041
     Dates: start: 20120213, end: 20120221
  3. ALPROSTADIL [Interacting]
     Indication: PERIPHERAL ISCHAEMIA
     Dosage: 40 ?g, BID
     Route: 042
     Dates: start: 20120213, end: 20120221
  4. ATORVASTATIN [Concomitant]
     Indication: DYSLIPIDAEMIA
     Dosage: 40 mg, QD
     Route: 048
     Dates: start: 20120203, end: 20120222
  5. PANTOPRAZOLE [Concomitant]
     Indication: PROPHYLAXIS
     Dosage: 40 mg, BID
     Route: 048
     Dates: start: 20120203, end: 20120222
  6. URBAL [Concomitant]
     Indication: PROPHYLAXIS
     Dosage: 1 g, TID
     Route: 048
     Dates: start: 20120203, end: 20120222

REACTIONS (1)
  - Hypovolaemic shock [Recovered/Resolved]
